FAERS Safety Report 24168786 (Version 1)
Quarter: 2024Q3

REPORT INFORMATION
  Report Type: Spontaneous
  Country: US (occurrence: None)
  Receive Date: 20240802
  Receipt Date: 20240802
  Transmission Date: 20241017
  Serious: Yes (Hospitalization)
  Sender: Public
  Company Number: None

PATIENT
  Sex: Female

DRUGS (11)
  1. NUCALA [Suspect]
     Active Substance: MEPOLIZUMAB
     Indication: Asthma
     Route: 058
     Dates: start: 20230830
  2. ALBUTEROL SULFATE [Concomitant]
  3. ASPIRIN LOW CHW 81MG [Concomitant]
  4. DEXAMETHASON TAB [Concomitant]
  5. ELIQUIS [Concomitant]
  6. GABAPENTIN [Concomitant]
  7. MELOXICAM [Concomitant]
  8. ONDANSETRON TAB [Concomitant]
  9. OXYCODONE [Concomitant]
  10. PREDNISONE [Concomitant]
  11. SERTRALINE [Concomitant]

REACTIONS (2)
  - Drug ineffective [None]
  - Hospitalisation [None]
